FAERS Safety Report 6852521-X (Version None)
Quarter: 2010Q3

REPORT INFORMATION
  Report Type: 
  Country: None (occurrence: None)
  Receive Date: 20100717
  Receipt Date: 20071217
  Transmission Date: 20110219
  Serious: No
  Sender: FDA-Public Use
  Company Number: US-PFIZER INC-2007096481

PATIENT
  Age: 50 Year
  Sex: Male

DRUGS (11)
  1. CHANTIX [Suspect]
     Indication: SMOKING CESSATION THERAPY
     Dates: start: 20071101, end: 20071116
  2. OXYCONTIN [Suspect]
     Indication: PAIN
  3. PERCOCET [Suspect]
     Indication: PAIN
  4. VALIUM [Concomitant]
  5. PROPRANOLOL [Concomitant]
  6. TAMSULOSIN HYDROCHLORIDE [Concomitant]
  7. VALPROATE SODIUM [Concomitant]
  8. SEROQUEL [Concomitant]
  9. GABAPENTIN [Concomitant]
  10. CENTRUM [Concomitant]
  11. VITAMIN C [Concomitant]

REACTIONS (3)
  - DRUG SCREEN NEGATIVE [None]
  - NAUSEA [None]
  - PAIN [None]
